FAERS Safety Report 6729319-6 (Version None)
Quarter: 2010Q2

REPORT INFORMATION
  Report Type: 
  Country: None (occurrence: None)
  Receive Date: 20100517
  Receipt Date: 20100507
  Transmission Date: 20101027
  Serious: No
  Sender: FDA-Public Use
  Company Number: US-ABBOTT-10P-163-0643182-00

PATIENT
  Sex: Female

DRUGS (4)
  1. SIMCOR [Suspect]
     Indication: DRUG USE FOR UNKNOWN INDICATION
     Dosage: 1000/20 MG DAILY
     Dates: start: 20100507
  2. LEVOTHYROXINE SODIUM [Concomitant]
     Indication: DRUG USE FOR UNKNOWN INDICATION
     Dosage: ALTERNATING WITH SYNTHROID 200 MCG
  3. LEVOTHYROXINE SODIUM [Concomitant]
     Dosage: ALTERNATING WITH SYNTHROID 175 MCG
  4. SYNTHROID [Concomitant]
     Indication: DRUG USE FOR UNKNOWN INDICATION
     Dosage: ALTERNATING WITH LEVOTHYROXIN 175 MCG

REACTIONS (3)
  - CHEST DISCOMFORT [None]
  - ERYTHEMA [None]
  - PRURITUS [None]
